FAERS Safety Report 9880289 (Version 12)
Quarter: 2015Q1

REPORT INFORMATION
  Report Type: Report from Study
  Country: IT (occurrence: IT)
  Receive Date: 20140207
  Receipt Date: 20150128
  Transmission Date: 20150721
  Serious: Yes (Hospitalization, Disabling)
  Sender: FDA-Public Use
  Company Number: IT-ROCHE-1339656

PATIENT
  Age: 59 Year
  Sex: Female
  Weight: 74 kg

DRUGS (28)
  1. CISPLATIN. [Suspect]
     Active Substance: CISPLATIN
     Route: 065
     Dates: start: 20121117
  2. RITUXIMAB [Suspect]
     Active Substance: RITUXIMAB
     Dosage: TOTAL NUMBER OF CYCLES RECEIVED BY TIME OF EVENT ONSET: 1,?FREQUENCY : QD.
     Route: 042
     Dates: start: 20121225, end: 20121225
  3. CISPLATIN. [Suspect]
     Active Substance: CISPLATIN
     Indication: DIFFUSE LARGE B-CELL LYMPHOMA
     Dosage: TOTAL NUMBER OF CYCLES RECEIVED BY TIME OF EVENT ONSET: 2
     Route: 042
     Dates: start: 20121016, end: 20121117
  4. CYTARABINE. [Suspect]
     Active Substance: CYTARABINE
     Indication: DIFFUSE LARGE B-CELL LYMPHOMA
     Dosage: TOTAL NUMBER OF CYCLES RECEIVED BY TIME OF EVENT ONSET: 2
     Route: 042
     Dates: start: 20121017, end: 20121118
  5. FULCRO [Concomitant]
     Active Substance: FENOFIBRATE
     Indication: DYSLIPIDAEMIA
     Route: 048
  6. LENALIDOMIDE [Concomitant]
     Active Substance: LENALIDOMIDE
     Dosage: TOTAL NUMBER OF CYCLES RECEIVED BY TIME OF EVENT ONSET: 1
     Route: 048
     Dates: start: 20131211, end: 20131231
  7. RITUXIMAB [Suspect]
     Active Substance: RITUXIMAB
     Route: 042
     Dates: start: 20121116
  8. VINCRISTINE [Suspect]
     Active Substance: VINCRISTINE
     Indication: DIFFUSE LARGE B-CELL LYMPHOMA
     Dosage: DATE OF MOST RECENT DOSE (2 MG) PRIOR TO SAE : 19/JUL/2012.?TOTAL NUMBER OF CYCLES RECEIVED BY TIME
     Route: 040
     Dates: start: 20120404, end: 20120719
  9. ACICLOVIR [Concomitant]
     Active Substance: ACYCLOVIR
     Indication: ANTIVIRAL PROPHYLAXIS
     Route: 048
     Dates: start: 20120412
  10. OBINUTUZUMAB [Suspect]
     Active Substance: OBINUTUZUMAB
     Indication: DIFFUSE LARGE B-CELL LYMPHOMA
     Dosage: DATE OF MOST RECENT DOSE (250 ML WITH DOSE CONCENTRATION OF 4 MG/ML) PRIOR TO SAE : 30/AUG/2012.?TOT
     Route: 042
     Dates: start: 20120404, end: 20120418
  11. CYTARABINE. [Suspect]
     Active Substance: CYTARABINE
     Route: 042
     Dates: start: 20121118
  12. DEXAMETHASONE. [Suspect]
     Active Substance: DEXAMETHASONE
     Indication: DIFFUSE LARGE B-CELL LYMPHOMA
     Dosage: TOTAL NUMBER OF CYCLES RECEIVED BY TIME OF EVENT ONSET: 2
     Route: 048
     Dates: start: 20121015, end: 20121019
  13. PREDNISONE. [Suspect]
     Active Substance: PREDNISONE
     Indication: DIFFUSE LARGE B-CELL LYMPHOMA
     Dosage: DATE OF MOST RECENT DOSE (100 MG) PRIOR TO SAE : 23JUL/2012.?TOTAL NUMBER OF CYCLES RECEIVED BY TIME
     Route: 048
     Dates: start: 20120404, end: 20120723
  14. MUPHORAN [Suspect]
     Active Substance: FOTEMUSTINE
     Indication: DIFFUSE LARGE B-CELL LYMPHOMA
     Dosage: TOTAL NUMBER OF CYCLES RECEIVED BY TIME OF EVENT ONSET: 1
     Route: 042
     Dates: start: 20130510, end: 20130510
  15. CYCLOPHOSPHAMIDE. [Suspect]
     Active Substance: CYCLOPHOSPHAMIDE
     Dosage: TOTAL NUMBER OF CYCLES RECEIVED BY TIME OF EVENT ONSET: 1
     Route: 042
     Dates: start: 20121223, end: 20121223
  16. DEXAMETHASONE. [Suspect]
     Active Substance: DEXAMETHASONE
     Dosage: TOTAL NUMBER OF CYCLES RECEIVED BY TIME OF EVENT ONSET: 2
     Route: 048
     Dates: start: 20121116, end: 20121120
  17. ETOPOSIDE. [Suspect]
     Active Substance: ETOPOSIDE
     Dosage: (VEPESID) TOTAL NUMBER OF CYCLES RECEIVED BY TIME OF EVENT ONSET: 1
     Route: 042
     Dates: start: 20130511, end: 20130514
  18. MELPHALAN [Suspect]
     Active Substance: MELPHALAN
     Indication: DIFFUSE LARGE B-CELL LYMPHOMA
     Dosage: TOTAL NUMBER OF CYCLES RECEIVED BY TIME OF EVENT ONSET: 1
     Route: 042
     Dates: start: 20130515, end: 20130515
  19. RITUXIMAB [Suspect]
     Active Substance: RITUXIMAB
     Indication: DIFFUSE LARGE B-CELL LYMPHOMA
     Dosage: TOTAL NUMBER OF CYCLES RECEIVED BY TIME OF EVENT ONSET: 2,?FREQUENCY : ONCE EVERY CYCLE.
     Route: 042
     Dates: start: 20121015, end: 20121116
  20. ETOPOSIDE. [Suspect]
     Active Substance: ETOPOSIDE
     Indication: DIFFUSE LARGE B-CELL LYMPHOMA
     Dosage: TOTAL NUMBER OF CYCLES RECEIVED BY TIME OF EVENT ONSET: 1
     Route: 042
     Dates: start: 20130405, end: 20130405
  21. SULFAMETHOXAZOLE/TRIMETHOPRIM [Concomitant]
     Active Substance: SULFAMETHOXAZOLE\TRIMETHOPRIM
     Indication: PROPHYLAXIS
     Dosage: SULFAMETHOXAZOLE (800 MG) AND TRIMETHOPRIM (160 MG)
     Route: 048
     Dates: start: 20120413
  22. PROVISACOR [Concomitant]
     Active Substance: ROSUVASTATIN
     Indication: HYPERCHOLESTEROLAEMIA
     Route: 048
  23. OBINUTUZUMAB [Suspect]
     Active Substance: OBINUTUZUMAB
     Dosage: TOTAL NUMBER OF CYCLES RECEIVED BY TIME OF EVENT ONSET: 7,?FREQUENCY : ONCE A CYCLE.
     Route: 042
     Dates: start: 20120426, end: 20120830
  24. CYCLOPHOSPHAMIDE. [Suspect]
     Active Substance: CYCLOPHOSPHAMIDE
     Indication: DIFFUSE LARGE B-CELL LYMPHOMA
     Dosage: (ENDOXAN) DATE OF MOST RECENT DOSE (1200 MG) PRIOR TO SAE : 19/JUL/2012.?TOTAL NUMBER OF CYCLES RECE
     Route: 042
     Dates: start: 20120404, end: 20120719
  25. DOXORUBICIN [Suspect]
     Active Substance: DOXORUBICIN
     Indication: DIFFUSE LARGE B-CELL LYMPHOMA
     Dosage: DATE OF MOST RECENT DOSE (80 MG, ONCE A CYCLE) PRIOR TO SAE : 19/JUL/2012.?TOTAL NUMBER OF CYCLES RE
     Route: 042
     Dates: start: 20120404, end: 20120719
  26. CYTARABINE. [Suspect]
     Active Substance: CYTARABINE
     Dosage: TOTAL NUMBER OF CYCLES RECEIVED BY TIME OF EVENT ONSET: 1
     Route: 042
     Dates: start: 20121223, end: 20130128
  27. NADROPARIN [Concomitant]
     Active Substance: NADROPARIN
     Indication: THROMBOSIS PROPHYLAXIS
     Dosage: 1 VIAL
     Route: 058
  28. LENALIDOMIDE [Concomitant]
     Active Substance: LENALIDOMIDE
     Indication: DIFFUSE LARGE B-CELL LYMPHOMA
     Dosage: TOTAL NUMBER OF CYCLES RECEIVED BY TIME OF EVENT ONSET: 1
     Route: 048
     Dates: start: 20131115, end: 20131205

REACTIONS (1)
  - Progressive multifocal leukoencephalopathy [Not Recovered/Not Resolved]

NARRATIVE: CASE EVENT DATE: 20140117
